FAERS Safety Report 4408608-4 (Version None)
Quarter: 2004Q3

REPORT INFORMATION
  Report Type: 
  Country: None (occurrence: None)
  Receive Date: 20040723
  Receipt Date: 20040714
  Transmission Date: 20050211
  Serious: Yes (Hospitalization, Other)
  Sender: FDA-Public Use
  Company Number: 2004-03180

PATIENT
  Age: 34 Year
  Sex: Female

DRUGS (2)
  1. MIRTAZAPINE [Suspect]
     Indication: DRUG USE FOR UNKNOWN INDICATION
     Dosage: 1.68 G, ORAL
     Route: 048
  2. ETHANOL [Concomitant]

REACTIONS (2)
  - MIOSIS [None]
  - OVERDOSE [None]
